FAERS Safety Report 13350797 (Version 1)
Quarter: 2017Q1

REPORT INFORMATION
  Report Type: Spontaneous
  Country: GE (occurrence: GE)
  Receive Date: 20170320
  Receipt Date: 20170320
  Transmission Date: 20170429
  Serious: Yes (Other)
  Sender: FDA-Public Use
  Company Number: GE-PIRAMAL ENTERPRISES LTD-2017-PEL-000735

PATIENT
  Age: 36 Year
  Sex: Female

DRUGS (13)
  1. FENTANYL. [Concomitant]
     Active Substance: FENTANYL
     Dosage: 250 ?G, UNK
     Route: 065
  2. PROPOFOL. [Suspect]
     Active Substance: PROPOFOL
     Indication: MAINTENANCE OF ANAESTHESIA
     Dosage: USED IN 6 SURGERIES
     Route: 042
  3. FENTANYL. [Concomitant]
     Active Substance: FENTANYL
     Dosage: 250 ?G, UNK
     Route: 065
  4. RISPERIDONE. [Concomitant]
     Active Substance: RISPERIDONE
     Dosage: 1 MG, BID, AFTER SECOND SURGERY AND FOR REMAINDER OF HOSPITAL STAY
     Route: 048
  5. FENTANYL. [Concomitant]
     Active Substance: FENTANYL
     Dosage: 100 ?G, UNK
     Route: 065
  6. FENTANYL. [Concomitant]
     Active Substance: FENTANYL
     Dosage: 50 ?G, UNK
     Route: 065
  7. HYDROMORPHONE                      /00080902/ [Concomitant]
     Dosage: 0.5 MG, UNK
     Route: 042
  8. NEOSTIGMINE [Concomitant]
     Active Substance: NEOSTIGMINE
     Indication: NEUROMUSCULAR BLOCKADE REVERSAL
     Dosage: 4 MG, UNK
     Route: 065
  9. SEVOFLURANE. [Suspect]
     Active Substance: SEVOFLURANE
     Indication: MAINTENANCE OF ANAESTHESIA
     Dosage: UNK
     Route: 065
  10. FENTANYL. [Concomitant]
     Active Substance: FENTANYL
     Dosage: 250 ?G; 2.1 ?G/KG
     Route: 065
  11. GLYCOPYRROLATE                     /00196201/ [Concomitant]
     Active Substance: GLYCOPYRRONIUM
     Indication: NEUROMUSCULAR BLOCKADE REVERSAL
     Dosage: 0.6 MG, UNK
     Route: 065
  12. FENTANYL. [Concomitant]
     Active Substance: FENTANYL
     Dosage: 125 ?G, UNK
     Route: 065
  13. FENTANYL. [Concomitant]
     Active Substance: FENTANYL
     Dosage: 50 ?G, UNK
     Route: 065

REACTIONS (2)
  - Agitation [Recovered/Resolved]
  - Delirium [Recovered/Resolved]
